FAERS Safety Report 7556829-4 (Version None)
Quarter: 2011Q2

REPORT INFORMATION
  Report Type: 
  Country: None (occurrence: None)
  Receive Date: 20110620
  Receipt Date: 20110606
  Transmission Date: 20111010
  Serious: Yes (Hospitalization)
  Sender: FDA-Public Use
  Company Number: GB-JNJFOC-20110603107

PATIENT
  Age: 87 Year
  Sex: Male
  Weight: 65 kg

DRUGS (7)
  1. INHALER (NOS) [Concomitant]
  2. REMICADE [Suspect]
     Indication: CROHN'S DISEASE
     Dosage: DURATION: 374 DAYS
     Route: 042
  3. ADCAL-D3 [Concomitant]
  4. REMICADE [Suspect]
     Dosage: DURATION: 374 DAYS
     Route: 042
     Dates: start: 20100321
  5. TERBUTALINE SULFATE [Concomitant]
  6. REMICADE [Suspect]
     Dosage: DURATION: 374 DAYS
     Route: 042
     Dates: start: 20110330, end: 20110330
  7. SLEEPING TABLETS [Concomitant]

REACTIONS (7)
  - CHEST DISCOMFORT [None]
  - DYSPNOEA [None]
  - OXYGEN SATURATION DECREASED [None]
  - TACHYCARDIA [None]
  - INFUSION RELATED REACTION [None]
  - HYPOTENSION [None]
  - FLUSHING [None]
